FAERS Safety Report 5649167-8 (Version None)
Quarter: 2008Q1

REPORT INFORMATION
  Report Type: 
  Country: None (occurrence: None)
  Receive Date: 20080131
  Receipt Date: 20070924
  Transmission Date: 20080703
  Serious: No
  Sender: FDA-Public Use
  Company Number: US200709005827

PATIENT
  Age: 59 Year
  Sex: Male

DRUGS (6)
  1. BYETTA [Suspect]
     Indication: TYPE 2 DIABETES MELLITUS
     Dosage: 5 UG, 2/D, SUBCUTANEOUS ; 10 UG, 2/D, SUBCUTANEOUS
     Route: 058
     Dates: start: 20060401, end: 20060501
  2. BYETTA [Suspect]
     Indication: TYPE 2 DIABETES MELLITUS
     Dosage: 5 UG, 2/D, SUBCUTANEOUS ; 10 UG, 2/D, SUBCUTANEOUS
     Route: 058
     Dates: start: 20060501
  3. METFORMIN HCL [Concomitant]
  4. ACTOS [Concomitant]
  5. GLUCOTROL [Concomitant]
  6. CINNAMON (CINNAMOMUM VERUM) [Concomitant]

REACTIONS (4)
  - ARTHRALGIA [None]
  - BLOOD GLUCOSE INCREASED [None]
  - DRUG EFFECT DECREASED [None]
  - HYPOAESTHESIA [None]
